FAERS Safety Report 6346405-3 (Version None)
Quarter: 2009Q3

REPORT INFORMATION
  Report Type: 
  Country: None (occurrence: None)
  Receive Date: 20090909
  Receipt Date: 20090828
  Transmission Date: 20100115
  Serious: Yes (Hospitalization)
  Sender: FDA-Public Use
  Company Number: US-CELGENEUS-163-20785-09082191

PATIENT
  Age: 76 Year
  Sex: Female

DRUGS (7)
  1. THALOMID [Suspect]
     Route: 048
  2. REVLIMID [Suspect]
     Route: 048
  3. REVLIMID [Suspect]
     Route: 048
  4. MELPHALAN HYDROCHLORIDE [Concomitant]
     Route: 065
  5. PREDNISONE TAB [Concomitant]
     Route: 065
  6. PREDNISONE TAB [Concomitant]
     Dosage: 1 MG/KG TAPERING TO 20 MG
     Route: 065
  7. DEXAMETHASONE [Concomitant]
     Route: 065

REACTIONS (2)
  - PNEUMONITIS [None]
  - RENAL IMPAIRMENT [None]
